FAERS Safety Report 24816509 (Version 1)
Quarter: 2025Q1

REPORT INFORMATION
  Report Type: Spontaneous
  Country: IT (occurrence: IT)
  Receive Date: 20250107
  Receipt Date: 20250107
  Transmission Date: 20250409
  Serious: Yes (Other)
  Sender: NOVARTIS
  Company Number: IT-JNJFOC-20210141994

PATIENT
  Age: 25 Year
  Sex: Male

DRUGS (8)
  1. HYDROCHLOROTHIAZIDE\VALSARTAN [Suspect]
     Active Substance: HYDROCHLOROTHIAZIDE\VALSARTAN
     Indication: Intentional self-injury
     Route: 048
     Dates: start: 20210124, end: 20210124
  2. RAMIPRIL [Suspect]
     Active Substance: RAMIPRIL
     Indication: Intentional self-injury
     Route: 048
     Dates: start: 20210124, end: 20210124
  3. BISOPROLOL [Suspect]
     Active Substance: BISOPROLOL
     Indication: Product used for unknown indication
     Route: 048
  4. VALIUM [Suspect]
     Active Substance: DIAZEPAM
     Indication: Intentional self-injury
     Route: 048
     Dates: start: 20210124, end: 20210124
  5. GLUCOPHAGE [Suspect]
     Active Substance: METFORMIN HYDROCHLORIDE
     Indication: Intentional self-injury
     Route: 048
     Dates: start: 20210124, end: 20210124
  6. FERROUS SULFATE [Suspect]
     Active Substance: FERROUS SULFATE
     Indication: Intentional self-injury
     Route: 048
     Dates: start: 20210124, end: 20210124
  7. HALOPERIDOL DECANOATE [Suspect]
     Active Substance: HALOPERIDOL DECANOATE
     Indication: Product used for unknown indication
     Route: 030
  8. HALOPERIDOL [Suspect]
     Active Substance: HALOPERIDOL
     Indication: Intentional self-injury
     Route: 048
     Dates: start: 20210124, end: 20210124

REACTIONS (5)
  - Self-destructive behaviour [Unknown]
  - Intentional product misuse [Unknown]
  - Intentional self-injury [Unknown]
  - Drug abuse [Unknown]
  - No adverse event [Unknown]

NARRATIVE: CASE EVENT DATE: 20210124
